FAERS Safety Report 10179751 (Version 3)
Quarter: 2014Q2

REPORT INFORMATION
  Report Type: Spontaneous
  Country: US (occurrence: None)
  Receive Date: 20140515
  Receipt Date: 20140616
  Transmission Date: 20141212
  Serious: Yes (Hospitalization)
  Sender: FDA-Public Use
  Company Number: UTC-048473

PATIENT
  Age: 39 Year
  Sex: Female
  Weight: 53.5 kg

DRUGS (2)
  1. REMODULIN [Suspect]
     Indication: PULMONARY ARTERIAL HYPERTENSION
     Dosage: 0.033 UG/KG/MIN, CONTINUING , IV DRIP
     Route: 041
     Dates: start: 20140124
  2. REVATIO (SILDENAFIL CITRATE) [Concomitant]

REACTIONS (8)
  - Loss of consciousness [None]
  - Head injury [None]
  - Pain in extremity [None]
  - Hypotension [None]
  - Palpitations [None]
  - Dyspepsia [None]
  - Syncope [None]
  - Suture rupture [None]
